FAERS Safety Report 8973844 (Version 1)
Quarter: 2012Q4

REPORT INFORMATION
  Report Type: 
  Country: US (occurrence: US)
  Receive Date: 20121218
  Receipt Date: 20121218
  Transmission Date: 20130627
  Serious: No
  Sender: FDA-Public Use
  Company Number: US-BRISTOL-MYERS SQUIBB COMPANY-16887408

PATIENT
  Age: 16 Year
  Sex: Female

DRUGS (2)
  1. ABILIFY [Suspect]
     Indication: AUTISM
     Dates: start: 201208
  2. OLANZAPINE [Concomitant]

REACTIONS (2)
  - Insomnia [Unknown]
  - Restlessness [Unknown]
